FAERS Safety Report 10257478 (Version 1)
Quarter: 2014Q2

REPORT INFORMATION
  Report Type: Spontaneous
  Country: US (occurrence: US)
  Receive Date: 20140625
  Receipt Date: 20140625
  Transmission Date: 20141212
  Serious: No
  Sender: FDA-Public Use
  Company Number: US-GLAXOSMITHKLINE-A1029813A

PATIENT
  Age: 61 Year
  Sex: Female

DRUGS (3)
  1. VERAMYST [Suspect]
     Indication: MULTIPLE ALLERGIES
     Dosage: 1SPR PER DAY
     Route: 045
     Dates: start: 2012, end: 201306
  2. ADVAIR [Concomitant]
  3. VENTOLIN [Concomitant]

REACTIONS (3)
  - Epistaxis [Recovered/Resolved]
  - Nasal ulcer [Unknown]
  - Nasal discomfort [Unknown]
